FAERS Safety Report 24329216 (Version 3)
Quarter: 2024Q4

REPORT INFORMATION
  Report Type: Spontaneous
  Country: US (occurrence: US)
  Receive Date: 20240917
  Receipt Date: 20241004
  Transmission Date: 20250114
  Serious: No
  Sender: NOVARTIS
  Company Number: US-002147023-NVSC2024US185311

PATIENT
  Sex: Female

DRUGS (1)
  1. DIOVAN HCT [Suspect]
     Active Substance: HYDROCHLOROTHIAZIDE\VALSARTAN
     Indication: Product used for unknown indication
     Dosage: UNK UNK, QD (80-150 MG)
     Route: 065

REACTIONS (4)
  - Muscle spasms [Unknown]
  - Abdominal discomfort [Unknown]
  - Headache [Unknown]
  - Illness [Unknown]
